FAERS Safety Report 10073601 (Version 1)
Quarter: 2014Q2

REPORT INFORMATION
  Report Type: Spontaneous
  Country: DE (occurrence: DE)
  Receive Date: 20140411
  Receipt Date: 20140411
  Transmission Date: 20141212
  Serious: Yes (Death, Hospitalization, Other)
  Sender: FDA-Public Use
  Company Number: DE-MPIJNJ-2014JNJ001639

PATIENT
  Sex: 0

DRUGS (2)
  1. VELCADE [Suspect]
     Indication: PLASMA CELL MYELOMA
     Dosage: 2.55 MG/M2, UNK
     Route: 058
     Dates: end: 20130905
  2. DEXAMETHASONE [Suspect]
     Indication: PLASMA CELL MYELOMA
     Dosage: 20 MG, UNK
     Route: 048
     Dates: start: 20130826, end: 20130906

REACTIONS (3)
  - Sepsis [Fatal]
  - Multi-organ failure [Fatal]
  - General physical health deterioration [Fatal]
